FAERS Safety Report 7162599-4 (Version None)
Quarter: 2010Q4

REPORT INFORMATION
  Report Type: 
  Country: None (occurrence: None)
  Receive Date: 20101215
  Receipt Date: 20091207
  Transmission Date: 20110411
  Serious: Yes (Other)
  Sender: FDA-Public Use
  Company Number: US-PFIZER INC-2009262641

PATIENT
  Sex: Female
  Weight: 56.689 kg

DRUGS (10)
  1. LYRICA [Suspect]
     Indication: PAIN
     Dosage: UNK
     Dates: start: 20050310, end: 20080101
  2. TRAZODONE HCL [Suspect]
     Dosage: UNK
     Dates: start: 20050101
  3. ACTONEL [Suspect]
     Dosage: UNK
     Dates: start: 20050311, end: 20050601
  4. PAXIL [Concomitant]
  5. DETROL LA [Concomitant]
  6. NEXIUM [Concomitant]
  7. LIPITOR [Concomitant]
  8. TOPROL-XL [Concomitant]
  9. TYLENOL (CAPLET) [Concomitant]
  10. AVINZA [Concomitant]

REACTIONS (12)
  - DEPRESSION [None]
  - DIABETES MELLITUS [None]
  - DYSARTHRIA [None]
  - IMMOBILE [None]
  - IMPAIRED SELF-CARE [None]
  - MEMORY IMPAIRMENT [None]
  - RENAL DISORDER [None]
  - SUICIDAL IDEATION [None]
  - TOOTH DISORDER [None]
  - TOOTH INFECTION [None]
  - URINARY INCONTINENCE [None]
  - WEIGHT INCREASED [None]
